FAERS Safety Report 24753783 (Version 2)
Quarter: 2025Q1

REPORT INFORMATION
  Report Type: Spontaneous
  Country: US (occurrence: US)
  Receive Date: 20241219
  Receipt Date: 20250102
  Transmission Date: 20250408
  Serious: No
  Sender: BAYER HEALTHCARE PHARMACEUTICALS INC.
  Company Number: US-BAYER-2024A178369

PATIENT
  Age: 42 Year
  Sex: Female

DRUGS (1)
  1. MIRENA [Suspect]
     Active Substance: LEVONORGESTREL
     Indication: Heavy menstrual bleeding
     Dosage: 20?G/DAY
     Route: 015
     Dates: start: 20241211, end: 20241211

REACTIONS (4)
  - Pelvic floor dysfunction [None]
  - Uterine cervix stenosis [None]
  - Abdominal pain lower [None]
  - Complication of device insertion [None]

NARRATIVE: CASE EVENT DATE: 20241211
